FAERS Safety Report 6542141-9 (Version None)
Quarter: 2010Q1

REPORT INFORMATION
  Report Type: 
  Country: None (occurrence: None)
  Receive Date: 20100119
  Receipt Date: 20100111
  Transmission Date: 20100710
  Serious: Yes (Hospitalization, Other)
  Sender: FDA-Public Use
  Company Number: US-JNJFOC-20091201579

PATIENT
  Sex: Male
  Weight: 63.5 kg

DRUGS (6)
  1. RISPERDAL CONSTA [Suspect]
     Indication: MENTAL RETARDATION
     Route: 030
  2. RISPERDAL CONSTA [Suspect]
     Route: 030
  3. RISPERDAL CONSTA [Suspect]
     Indication: ABNORMAL BEHAVIOUR
     Route: 030
  4. RISPERDAL CONSTA [Suspect]
     Route: 030
  5. CLOZARIL [Concomitant]
     Indication: ABNORMAL BEHAVIOUR
     Route: 065
  6. SYNTHROID [Concomitant]
     Indication: HYPOTHYROIDISM
     Route: 065

REACTIONS (24)
  - ABDOMINAL PAIN [None]
  - ABDOMINAL PAIN UPPER [None]
  - ABNORMAL BEHAVIOUR [None]
  - CHEST PAIN [None]
  - CONFUSIONAL STATE [None]
  - DECREASED APPETITE [None]
  - DISTURBANCE IN ATTENTION [None]
  - DIZZINESS [None]
  - DRY MOUTH [None]
  - EAR PAIN [None]
  - EYE PAIN [None]
  - FATIGUE [None]
  - GLOSSODYNIA [None]
  - GRAND MAL CONVULSION [None]
  - HALLUCINATION [None]
  - HYPOKINESIA [None]
  - INCORRECT DOSE ADMINISTERED [None]
  - INJECTION SITE PAIN [None]
  - MUSCULOSKELETAL PAIN [None]
  - MUSCULOSKELETAL STIFFNESS [None]
  - PAIN IN EXTREMITY [None]
  - RHINALGIA [None]
  - SLUGGISHNESS [None]
  - TREATMENT NONCOMPLIANCE [None]
